FAERS Safety Report 19684988 (Version 3)
Quarter: 2021Q3

REPORT INFORMATION
  Report Type: Spontaneous
  Country: GB (occurrence: GB)
  Receive Date: 20210811
  Receipt Date: 20210923
  Transmission Date: 20211014
  Serious: Yes (Other)
  Sender: FDA-Public Use
  Company Number: GB-COLLEGIUM PHARMACEUTICAL, INC.-2020CGM00422

PATIENT
  Age: 31 Year
  Sex: Female
  Weight: 71 kg

DRUGS (6)
  1. SALBUTAMOL [Concomitant]
     Active Substance: ALBUTEROL
     Dosage: UNK
     Dates: start: 2010
  2. AMITRIPTYLINE [Concomitant]
     Active Substance: AMITRIPTYLINE
     Dosage: UNK
     Dates: start: 2018
  3. NAPROXEN. [Concomitant]
     Active Substance: NAPROXEN
     Dosage: UNK
     Dates: start: 20171102, end: 202011
  4. GABAPENTIN. [Concomitant]
     Active Substance: GABAPENTIN
     Dosage: UNK
     Dates: start: 20171108, end: 202011
  5. TAPENTADOL [Suspect]
     Active Substance: TAPENTADOL
     Indication: BACK PAIN
     Dosage: 100 MG, 2X/DAY
     Route: 048
     Dates: start: 20191209, end: 202011
  6. QUTENZA [Suspect]
     Active Substance: CAPSAICIN
     Indication: SCAR PAIN
     Dosage: UNK
     Route: 003
     Dates: start: 201804, end: 20210216

REACTIONS (11)
  - Premature delivery [Unknown]
  - COVID-19 [Recovered/Resolved]
  - Intrapartum haemorrhage [Unknown]
  - Product supply issue [Unknown]
  - Haemorrhage in pregnancy [Recovered/Resolved]
  - Small for dates baby [Unknown]
  - Prolonged labour [Unknown]
  - Inappropriate schedule of product administration [Not Recovered/Not Resolved]
  - Maternal exposure during pregnancy [Recovered/Resolved]
  - Induced labour [Unknown]
  - Foetal hypokinesia [Unknown]

NARRATIVE: CASE EVENT DATE: 202011
